FAERS Safety Report 7463150-1 (Version None)
Quarter: 2011Q2

REPORT INFORMATION
  Report Type: 
  Country: None (occurrence: None)
  Receive Date: 20110506
  Receipt Date: 20110502
  Transmission Date: 20111010
  Serious: Yes (Hospitalization, Other)
  Sender: FDA-Public Use
  Company Number: FR-PFIZER INC-2011005336

PATIENT
  Age: 80 Year
  Sex: Male
  Weight: 61.8 kg

DRUGS (19)
  1. BISOPROLOL [Concomitant]
     Dosage: 2.5 MG, 1X/DAY IN THE MORNING
  2. PREVISCAN [Concomitant]
     Dosage: 0.5 DF, ALTERNATE DAY IN THE EVENING
  3. NORMACOL [Concomitant]
     Dosage: UNK, AS NEEDED
  4. RIVOTRIL [Concomitant]
     Dosage: 5 DROPS AT NIGHT + 2 DROPS EVERY 8 HOURS
  5. NEXIUM [Concomitant]
     Dosage: 40 MG, 1X/DAY IN THE EVENING
  6. NOVOMIX [Concomitant]
     Dosage: 10 IU, 1X/DAY IN THE EVENING
  7. CORDARONE [Concomitant]
     Dosage: 200 MG, 1X/DAY IN THE MORNING
  8. FORLAX [Concomitant]
     Dosage: 2 DF, 1X/DAY IN THE MORNING
  9. RAMIPRIL [Concomitant]
     Dosage: 5 MG, 1X/DAY IN THE MORNING
  10. TAHOR [Concomitant]
     Dosage: 40 MG, 1X/DAY IN THE EVENING
  11. LYRICA [Suspect]
     Dosage: 25 MG, 2X/DAY
  12. LYRICA [Suspect]
     Dosage: 75 MG IN THE MORNING AND IN THE EVENING
     Route: 048
     Dates: start: 20101217, end: 20101219
  13. LASIX [Concomitant]
     Dosage: 20 MG, 1X/DAY AT NOON
  14. ACUPAN [Concomitant]
     Dosage: 1 VIAL, EVERY 6 HOURS AS NEEDED
  15. LYRICA [Suspect]
     Indication: NEURALGIA
     Dosage: 25 MG, 1X/DAY
  16. LASIX [Concomitant]
     Dosage: 40 MG, 4X/DAY (3 DF IN THE MORNING AND 1 DF AT NOON)
  17. PREVISCAN [Concomitant]
     Dosage: 0.25 DF, ALTERNATE DAY IN THE EVENING
  18. KETODERM [Concomitant]
     Dosage: UNK, 1 APPLICATION PER DAY
  19. NOVOMIX [Concomitant]
     Dosage: 20 IU, 1X/DAY IN THE MORNING

REACTIONS (4)
  - HALLUCINATION, VISUAL [None]
  - AGGRESSION [None]
  - CONFUSIONAL STATE [None]
  - LIVER FUNCTION TEST ABNORMAL [None]
